FAERS Safety Report 12976920 (Version 2)
Quarter: 2016Q4

REPORT INFORMATION
  Report Type: Report from Study
  Country: HN (occurrence: HN)
  Receive Date: 20161128
  Receipt Date: 20161205
  Transmission Date: 20170207
  Serious: Yes (Death, Hospitalization, Other)
  Sender: FDA-Public Use
  Company Number: PHHY2016HN161573

PATIENT
  Age: 59 Year
  Sex: Female
  Weight: 53.1 kg

DRUGS (6)
  1. GLIVEC [Suspect]
     Active Substance: IMATINIB MESYLATE
     Indication: GASTROINTESTINAL STROMAL TUMOUR
     Dosage: 400 MG, UNK
     Route: 065
     Dates: end: 200804
  2. GLIVEC [Suspect]
     Active Substance: IMATINIB MESYLATE
     Dosage: UNK
     Route: 065
     Dates: start: 201401, end: 201609
  3. GLIVEC [Suspect]
     Active Substance: IMATINIB MESYLATE
     Dosage: UNK
     Route: 065
     Dates: end: 201610
  4. SUNITINIB [Suspect]
     Active Substance: SUNITINIB
     Indication: GASTROINTESTINAL STROMAL TUMOUR
     Dosage: APPROXIMATELY A YEAR
     Route: 065
  5. ADRIAMYCIN [Suspect]
     Active Substance: DOXORUBICIN HYDROCHLORIDE
     Indication: GASTROINTESTINAL STROMAL TUMOUR
     Dosage: 3 CYCLES
     Route: 065
  6. CYCLOPHOSPHAMIDE. [Suspect]
     Active Substance: CYCLOPHOSPHAMIDE
     Indication: GASTROINTESTINAL STROMAL TUMOUR
     Dosage: 3 CYCLES
     Route: 065

REACTIONS (12)
  - Disseminated intravascular coagulation [Unknown]
  - Hydronephrosis [Unknown]
  - Gastrointestinal stromal tumour [Unknown]
  - Cholelithiasis [Unknown]
  - Death [Fatal]
  - Recurrent cancer [Unknown]
  - Haemoglobin decreased [Unknown]
  - Therapeutic response decreased [Unknown]
  - Gastrointestinal haemorrhage [Unknown]
  - Intestinal obstruction [Unknown]
  - Portal vein dilatation [Unknown]
  - Ascites [Unknown]

NARRATIVE: CASE EVENT DATE: 201102
